FAERS Safety Report 8765625 (Version 2)
Quarter: 2012Q4

REPORT INFORMATION
  Report Type: 
  Country: DE (occurrence: DE)
  Receive Date: 20120903
  Receipt Date: 20121022
  Transmission Date: 20130627
  Serious: Yes (Other)
  Sender: FDA-Public Use
  Company Number: PHHY2012DE075594

PATIENT
  Sex: Female
  Weight: 63 kg

DRUGS (3)
  1. ACLASTA [Suspect]
     Indication: OSTEOPENIA
     Dosage: 5 mg/year
     Route: 042
     Dates: start: 20120326
  2. ARCOXIA [Concomitant]
     Indication: RHEUMATOID ARTHRITIS
     Dosage: 90 mg, PRN
     Route: 048
     Dates: start: 2008
  3. ARAVA [Concomitant]
     Indication: RHEUMATOID ARTHRITIS
     Dosage: 20 mg, UNK
     Route: 048
     Dates: start: 201001

REACTIONS (1)
  - Blood creatinine increased [Unknown]
